FAERS Safety Report 12421872 (Version 1)
Quarter: 2016Q2

REPORT INFORMATION
  Report Type: Spontaneous
  Country: US (occurrence: US)
  Receive Date: 20160531
  Receipt Date: 20160531
  Transmission Date: 20160815
  Serious: No
  Sender: FDA-Public Use
  Company Number: US-ELI_LILLY_AND_COMPANY-US201605010112

PATIENT
  Sex: Female

DRUGS (3)
  1. TRULICITY [Concomitant]
     Active Substance: DULAGLUTIDE
  2. LEVEMIR [Concomitant]
     Active Substance: INSULIN DETEMIR
  3. HUMALOG [Suspect]
     Active Substance: INSULIN LISPRO
     Indication: TYPE 2 DIABETES MELLITUS
     Dosage: 12-14 U, WITH MEALS
     Route: 065
     Dates: start: 201509

REACTIONS (2)
  - Accidental underdose [Unknown]
  - Accidental underdose [Unknown]

NARRATIVE: CASE EVENT DATE: 20160425
